FAERS Safety Report 25754006 (Version 3)
Quarter: 2025Q4

REPORT INFORMATION
  Report Type: Spontaneous
  Country: JP (occurrence: JP)
  Receive Date: 20250903
  Receipt Date: 20251126
  Transmission Date: 20260117
  Serious: Yes (Other)
  Sender: AMGEN
  Company Number: JP-AMGEN-JPNSP2025173929

PATIENT
  Age: 1 Month
  Sex: Male
  Weight: 5.6 kg

DRUGS (12)
  1. BUPHENYL [Suspect]
     Active Substance: SODIUM PHENYLBUTYRATE
     Indication: Ornithine transcarbamoylase deficiency
     Dosage: 400 MILLIGRAM, Q8H
     Route: 048
     Dates: start: 20250727
  2. BUPHENYL [Suspect]
     Active Substance: SODIUM PHENYLBUTYRATE
     Indication: Hyperammonaemia
     Dosage: 700 MILLIGRAM, QD
     Route: 048
     Dates: start: 202508
  3. SODIUM BENZOATE [Suspect]
     Active Substance: SODIUM BENZOATE
     Indication: Ornithine transcarbamoylase deficiency
     Dosage: 200 MILLIGRAM, TID
     Route: 048
     Dates: start: 20250719
  4. SODIUM BENZOATE [Suspect]
     Active Substance: SODIUM BENZOATE
     Indication: Hyperammonaemia
     Dosage: 700 MILLIGRAM, QD
     Route: 040
     Dates: start: 202508
  5. ARGININE HYDROCHLORIDE [Suspect]
     Active Substance: ARGININE HYDROCHLORIDE
     Indication: Ornithine transcarbamoylase deficiency
     Dosage: 150 MILLIGRAM, TID
     Route: 040
     Dates: start: 20250722
  6. ARGININE HYDROCHLORIDE [Suspect]
     Active Substance: ARGININE HYDROCHLORIDE
     Dosage: 400 MILLIGRAM, QD
     Route: 040
     Dates: start: 202508
  7. CARNITINE CHLORIDE [Concomitant]
     Active Substance: CARNITINE CHLORIDE
     Indication: Ornithine transcarbamoylase deficiency
     Dosage: 500 MILLIGRAM, QD
     Route: 048
     Dates: start: 202508
  8. CITRULLINE [Suspect]
     Active Substance: CITRULLINE
     Indication: Ornithine transcarbamoylase deficiency
     Dosage: 600 MILLIGRAM, QD
     Route: 048
     Dates: start: 20250715
  9. LEVOCARNITINE [Suspect]
     Active Substance: LEVOCARNITINE
     Indication: Ornithine transcarbamoylase deficiency
     Dosage: 2 MILLILITER, QD
     Route: 048
     Dates: start: 20250722
  10. LEVOCARNITINE [Suspect]
     Active Substance: LEVOCARNITINE
     Dosage: 500 MILLIGRAM, QD
     Route: 048
     Dates: start: 202508
  11. PHENOBARBITAL [Concomitant]
     Active Substance: PHENOBARBITAL
     Indication: Seizure
     Dosage: 1.5 MILLILITER, BID
     Route: 048
     Dates: start: 20250722, end: 20250808
  12. LEVETIRACETAM [Suspect]
     Active Substance: LEVETIRACETAM
     Indication: Seizure
     Dosage: 25 MILLIGRAM, BID
     Route: 048
     Dates: start: 20250809

REACTIONS (2)
  - Renal tubular acidosis [Not Recovered/Not Resolved]
  - Acidosis hyperchloraemic [Not Recovered/Not Resolved]

NARRATIVE: CASE EVENT DATE: 20250801
